FAERS Safety Report 16260372 (Version 7)
Quarter: 2020Q2

REPORT INFORMATION
  Report Type: Report from Study
  Country: US (occurrence: US)
  Receive Date: 20190501
  Receipt Date: 20200629
  Transmission Date: 20200713
  Serious: Yes (Death, Hospitalization, Other)
  Sender: FDA-Public Use
  Company Number: US-ROCHE-2306562

PATIENT
  Age: 54 Year
  Sex: Female
  Weight: 71.8 kg

DRUGS (15)
  1. ATORVASTATIN [Concomitant]
     Active Substance: ATORVASTATIN
  2. ASPIRIN [ACETYLSALICYLIC ACID] [Concomitant]
     Active Substance: ASPIRIN
  3. SENNA GLYCOSIDES [Concomitant]
     Active Substance: HERBALS\SENNOSIDES
  4. COBIMETINIB. [Suspect]
     Active Substance: COBIMETINIB
     Indication: CHOLANGIOCARCINOMA
     Route: 048
     Dates: start: 20180726, end: 20180802
  5. MIRTAZAPINE. [Concomitant]
     Active Substance: MIRTAZAPINE
  6. DOCUSATE SODIUM. [Concomitant]
     Active Substance: DOCUSATE SODIUM
  7. METOPROLOL. [Concomitant]
     Active Substance: METOPROLOL
  8. POLYETHYLENE GLYCOL [MACROGOL] [Concomitant]
     Active Substance: POLYETHYLENE GLYCOLS
  9. MAGNESIUM OXIDE. [Concomitant]
     Active Substance: MAGNESIUM OXIDE
  10. ATEZOLIZUMAB. [Suspect]
     Active Substance: ATEZOLIZUMAB
     Indication: CHOLANGIOCARCINOMA
     Dosage: ON DAYS 1 AND 15
     Route: 041
     Dates: start: 20180726, end: 20180726
  11. ENOXAPARIN [Concomitant]
     Active Substance: ENOXAPARIN
  12. ALPRAZOLAM. [Concomitant]
     Active Substance: ALPRAZOLAM
  13. OXYCODONE [Concomitant]
     Active Substance: OXYCODONE
  14. ONDANSETRON [Concomitant]
     Active Substance: ONDANSETRON
  15. SERTRALINE [Concomitant]
     Active Substance: SERTRALINE HYDROCHLORIDE

REACTIONS (6)
  - Death [Fatal]
  - Myocarditis [Recovered/Resolved]
  - Stress cardiomyopathy [Unknown]
  - Lymphocyte count decreased [Unknown]
  - Troponin I increased [Unknown]
  - Colitis [Recovered/Resolved]

NARRATIVE: CASE EVENT DATE: 20180803
